FAERS Safety Report 9596221 (Version 6)
Quarter: 2015Q2

REPORT INFORMATION
  Report Type: Spontaneous
  Country: US (occurrence: US)
  Receive Date: 20131004
  Receipt Date: 20150409
  Transmission Date: 20150821
  Serious: Yes (Hospitalization, Other)
  Sender: FDA-Public Use
  Company Number: US-PFIZER INC-2013281211

PATIENT
  Age: 55 Year
  Sex: Female
  Weight: 132.43 kg

DRUGS (14)
  1. HYDRALAZINE [Concomitant]
     Active Substance: HYDRALAZINE HYDROCHLORIDE
     Dosage: UNK
  2. OMEPRAZOLE. [Concomitant]
     Active Substance: OMEPRAZOLE
     Dosage: 20 MG, DAILY
  3. TORSEMIDE. [Concomitant]
     Active Substance: TORSEMIDE
     Dosage: 50 MG, DAILY
  4. WARFARIN [Concomitant]
     Active Substance: WARFARIN
     Indication: ANTICOAGULANT THERAPY
     Dosage: UNK
     Route: 048
  5. NORCO [Concomitant]
     Active Substance: ACETAMINOPHEN\HYDROCODONE BITARTRATE
     Dosage: HYDROCODONE BITARTRATE 7.5/PARACETAMOL  500 AS NEEDED
  6. K-DUR [Concomitant]
     Active Substance: POTASSIUM CHLORIDE
     Dosage: UNK
  7. CALCIUM [Concomitant]
     Active Substance: CALCIUM
     Indication: DYSPEPSIA
     Dosage: 1000 MG, AS NEEDED
  8. LANOXIN [Concomitant]
     Active Substance: DIGOXIN
     Dosage: 125 UG, UNK
  9. TRACLEER [Suspect]
     Active Substance: BOSENTAN\BOSENTAN MONOHYDRATE
     Indication: PULMONARY ARTERIAL HYPERTENSION
     Dosage: 125 MG, 2X/DAY
     Route: 048
     Dates: end: 20141223
  10. REVATIO [Suspect]
     Active Substance: SILDENAFIL CITRATE
     Indication: PULMONARY HYPERTENSION
     Dosage: 20 MG, 3X/DAY
     Route: 048
     Dates: start: 20070824
  11. REVATIO [Suspect]
     Active Substance: SILDENAFIL CITRATE
     Dosage: 20 MG, 2X/DAY
     Route: 048
  12. METOLAZONE. [Concomitant]
     Active Substance: METOLAZONE
     Dosage: UNK
  13. ADVAIR HFA [Concomitant]
     Active Substance: FLUTICASONE PROPIONATE\SALMETEROL XINAFOATE
     Dosage: 2 PUFFS TWICE DAILY
  14. OPSUMIT [Concomitant]
     Active Substance: MACITENTAN
     Indication: PULMONARY HYPERTENSION
     Dosage: UNK

REACTIONS (10)
  - Atrial flutter [Recovered/Resolved]
  - Weaning failure [Recovered/Resolved]
  - Condition aggravated [Unknown]
  - Fluid overload [Unknown]
  - Pulmonary hypertension [Unknown]
  - Palpitations [Unknown]
  - Arrhythmia [Recovered/Resolved]
  - Oedema [Recovering/Resolving]
  - Fluid retention [Unknown]
  - Cardiac disorder [Recovered/Resolved]

NARRATIVE: CASE EVENT DATE: 201304
